FAERS Safety Report 8195884-8 (Version None)
Quarter: 2012Q1

REPORT INFORMATION
  Report Type: 
  Country: None (occurrence: None)
  Receive Date: 20120308
  Receipt Date: 20120228
  Transmission Date: 20120608
  Serious: Yes (Hospitalization, Other)
  Sender: FDA-Public Use
  Company Number: US-ASTRAZENECA-2011SE26976

PATIENT
  Age: 51 Year
  Sex: Male

DRUGS (6)
  1. NEXIUM [Suspect]
     Indication: ULCER HAEMORRHAGE
     Dosage: GENERIC
     Route: 048
  2. NEXIUM [Suspect]
     Route: 048
     Dates: start: 20070101
  3. NEXIUM [Suspect]
     Route: 048
  4. PRILOSEC [Suspect]
     Route: 048
  5. NEXIUM [Suspect]
     Route: 048
  6. OVER THE COUNTER MEDICATIONS [Concomitant]

REACTIONS (11)
  - INAPPROPRIATE SCHEDULE OF DRUG ADMINISTRATION [None]
  - DRUG DOSE OMISSION [None]
  - PAIN [None]
  - ERUCTATION [None]
  - ABDOMINAL PAIN [None]
  - GASTROINTESTINAL ULCER HAEMORRHAGE [None]
  - RASH [None]
  - DRUG PRESCRIBING ERROR [None]
  - HAEMORRHAGE [None]
  - DRUG HYPERSENSITIVITY [None]
  - MALAISE [None]
